FAERS Safety Report 18434263 (Version 1)
Quarter: 2020Q4

REPORT INFORMATION
  Report Type: Spontaneous
  Country: ES (occurrence: ES)
  Receive Date: 20201027
  Receipt Date: 20201027
  Transmission Date: 20210114
  Serious: No
  Sender: FDA-Public Use
  Company Number: ES-CANTON LABORATORIES, LLC-2093199

PATIENT
  Age: 62 Year
  Sex: Female

DRUGS (6)
  1. NAPROSYN [Suspect]
     Active Substance: NAPROXEN
     Indication: PAIN
     Route: 065
     Dates: start: 20200703, end: 20200705
  2. SIMVASTATIN. [Concomitant]
     Active Substance: SIMVASTATIN
     Route: 048
     Dates: start: 20180301
  3. OMEPRAZOLE. [Concomitant]
     Active Substance: OMEPRAZOLE
     Route: 048
     Dates: start: 20181001
  4. DIASOL DY-8 [HERBALS] [Suspect]
     Active Substance: HERBALS
     Route: 048
     Dates: start: 20200705, end: 20200705
  5. PREGABALIN. [Concomitant]
     Active Substance: PREGABALIN
     Route: 048
     Dates: start: 20180401
  6. AMERIDE [Concomitant]
     Route: 048
     Dates: start: 20180901

REACTIONS (1)
  - Cholestasis [Recovered/Resolved]

NARRATIVE: CASE EVENT DATE: 20200705
